FAERS Safety Report 11966744 (Version 2)
Quarter: 2016Q1

REPORT INFORMATION
  Report Type: Spontaneous
  Country: US (occurrence: US)
  Receive Date: 20160127
  Receipt Date: 20160203
  Transmission Date: 20160526
  Serious: Yes (Other)
  Sender: FDA-Public Use
  Company Number: US-009507513-1601USA007655

PATIENT
  Age: 18 Year
  Sex: Female
  Weight: 75.28 kg

DRUGS (1)
  1. NEXPLANON [Suspect]
     Active Substance: ETONOGESTREL
     Dosage: UNK
     Route: 059
     Dates: start: 20150502

REACTIONS (4)
  - Depression [Unknown]
  - Mood swings [Unknown]
  - Asthenia [Unknown]
  - Menorrhagia [Unknown]

NARRATIVE: CASE EVENT DATE: 20150205
